FAERS Safety Report 19056291 (Version 2)
Quarter: 2021Q2

REPORT INFORMATION
  Report Type: Spontaneous
  Country: US (occurrence: US)
  Receive Date: 20210325
  Receipt Date: 20210419
  Transmission Date: 20210717
  Serious: Yes (Other)
  Sender: FDA-Public Use
  Company Number: US-PFIZER INC-2021269301

PATIENT
  Age: 64 Year
  Sex: Female
  Weight: 53.52 kg

DRUGS (4)
  1. SULFAMETHOXAZOLE [Suspect]
     Active Substance: SULFAMETHOXAZOLE
     Indication: DIVERTICULITIS
     Dosage: UNK, 3X/DAY
     Dates: start: 20200720
  2. METRONIDAZOLE. [Suspect]
     Active Substance: METRONIDAZOLE
     Indication: DIVERTICULITIS
     Dosage: UNK, 2X/DAY
     Dates: start: 20200720
  3. LEVAQUIN [Suspect]
     Active Substance: LEVOFLOXACIN
     Indication: SINUSITIS
     Dosage: UNK
  4. AVELOX [Suspect]
     Active Substance: MOXIFLOXACIN HYDROCHLORIDE
     Indication: SINUSITIS
     Dosage: UNK

REACTIONS (9)
  - Cerebrovascular accident [Recovered/Resolved]
  - Muscular weakness [Recovered/Resolved]
  - Drug hypersensitivity [Recovered/Resolved]
  - Asthenia [Recovered/Resolved]
  - Arthralgia [Unknown]
  - Dysarthria [Recovered/Resolved]
  - Tremor [Unknown]
  - Muscle twitching [Recovered/Resolved]
  - Myalgia [Unknown]
